FAERS Safety Report 24310359 (Version 4)
Quarter: 2025Q2

REPORT INFORMATION
  Report Type: Spontaneous
  Country: US (occurrence: US)
  Receive Date: 20240912
  Receipt Date: 20250628
  Transmission Date: 20250716
  Serious: Yes (Hospitalization, Other)
  Sender: JOHNSON AND JOHNSON
  Company Number: US-JNJFOC-20240921530

PATIENT
  Age: 5 Decade
  Sex: Female
  Weight: 61.69 kg

DRUGS (24)
  1. RISPERDAL [Suspect]
     Active Substance: RISPERIDONE
     Indication: Psychotic disorder
     Dosage: 1.5 TABLET TWICE A DAY FOR 7 DAYS, THEN 1.5 TABLET EVERY MORNING AND 1 TABLET AT NIGHT
     Route: 048
     Dates: start: 20190807, end: 20200807
  2. RISPERDAL [Suspect]
     Active Substance: RISPERIDONE
     Dosage: 1.5 TABLET AT BEDTIME
     Route: 048
     Dates: start: 20170516, end: 20180517
  3. RISPERDAL [Suspect]
     Active Substance: RISPERIDONE
     Dosage: 2 TABLET AT BEDTIME
     Route: 048
     Dates: start: 20090925, end: 20120523
  4. RISPERDAL [Suspect]
     Active Substance: RISPERIDONE
     Dosage: 1.5 TABLET TWICE A DAY FOR 7 DAYS, THEN 1 TABLET AT BEDTIME
     Route: 048
     Dates: start: 20090821, end: 20110707
  5. RISPERDAL [Suspect]
     Active Substance: RISPERIDONE
     Dosage: 2 TABLET AT BEDTIME
     Route: 048
     Dates: start: 20100727, end: 20100731
  6. INVEGA SUSTENNA [Suspect]
     Active Substance: PALIPERIDONE PALMITATE
     Indication: Psychotic disorder
     Route: 030
     Dates: start: 20190117, end: 20200118
  7. INVEGA SUSTENNA [Suspect]
     Active Substance: PALIPERIDONE PALMITATE
     Route: 030
     Dates: start: 20190703, end: 20190802
  8. INVEGA SUSTENNA [Suspect]
     Active Substance: PALIPERIDONE PALMITATE
     Route: 030
     Dates: start: 20190605, end: 20190705
  9. INVEGA SUSTENNA [Suspect]
     Active Substance: PALIPERIDONE PALMITATE
     Route: 030
     Dates: start: 20190509, end: 20190608
  10. INVEGA SUSTENNA [Suspect]
     Active Substance: PALIPERIDONE PALMITATE
     Route: 030
     Dates: start: 20180425, end: 20190426
  11. INVEGA SUSTENNA [Suspect]
     Active Substance: PALIPERIDONE PALMITATE
     Route: 030
     Dates: start: 20170516, end: 20181127
  12. INVEGA SUSTENNA [Suspect]
     Active Substance: PALIPERIDONE PALMITATE
     Route: 030
     Dates: start: 20170217, end: 20180218
  13. INVEGA SUSTENNA [Suspect]
     Active Substance: PALIPERIDONE PALMITATE
     Route: 030
     Dates: start: 20160315, end: 20170316
  14. INVEGA SUSTENNA [Suspect]
     Active Substance: PALIPERIDONE PALMITATE
     Route: 030
     Dates: start: 20150330, end: 20160330
  15. INVEGA SUSTENNA [Suspect]
     Active Substance: PALIPERIDONE PALMITATE
     Route: 030
     Dates: start: 20141103, end: 20151104
  16. INVEGA SUSTENNA [Suspect]
     Active Substance: PALIPERIDONE PALMITATE
     Route: 030
     Dates: start: 20140922, end: 20150923
  17. INVEGA SUSTENNA [Suspect]
     Active Substance: PALIPERIDONE PALMITATE
     Route: 030
     Dates: start: 20140709, end: 20150710
  18. INVEGA SUSTENNA [Suspect]
     Active Substance: PALIPERIDONE PALMITATE
     Route: 030
     Dates: start: 20100825, end: 20110826
  19. INVEGA SUSTENNA [Suspect]
     Active Substance: PALIPERIDONE PALMITATE
     Route: 030
     Dates: start: 20100809, end: 20100908
  20. INVEGA SUSTENNA [Suspect]
     Active Substance: PALIPERIDONE PALMITATE
     Route: 030
     Dates: start: 20190819, end: 20190820
  21. INVEGA SUSTENNA [Suspect]
     Active Substance: PALIPERIDONE PALMITATE
     Route: 030
     Dates: start: 20181224, end: 20181224
  22. INVEGA SUSTENNA [Suspect]
     Active Substance: PALIPERIDONE PALMITATE
     Route: 030
     Dates: start: 20180326, end: 20180409
  23. INVEGA SUSTENNA [Suspect]
     Active Substance: PALIPERIDONE PALMITATE
     Route: 030
     Dates: start: 20140701, end: 20140701
  24. BUPROPION [Concomitant]
     Active Substance: BUPROPION
     Indication: Product used for unknown indication

REACTIONS (21)
  - Tardive dyskinesia [Unknown]
  - Cyst removal [Unknown]
  - Treatment noncompliance [Unknown]
  - Hyperprolactinaemia [Recovered/Resolved]
  - Hepatic steatosis [Unknown]
  - Blood cholesterol increased [Unknown]
  - Photophobia [Unknown]
  - Tinnitus [Unknown]
  - Night sweats [Unknown]
  - Mastitis [Unknown]
  - Tremor [Unknown]
  - Lymphadenopathy [Unknown]
  - Bone pain [Unknown]
  - Therapy non-responder [Unknown]
  - Abdominal pain [Recovered/Resolved]
  - Weight increased [Unknown]
  - Galactorrhoea [Recovering/Resolving]
  - Amenorrhoea [Unknown]
  - Euphoric mood [Unknown]
  - Dysmenorrhoea [Unknown]
  - Dizziness [Unknown]

NARRATIVE: CASE EVENT DATE: 20200101
